FAERS Safety Report 20426217 (Version 1)
Quarter: 2022Q1

REPORT INFORMATION
  Report Type: Report from Study
  Country: CA (occurrence: CA)
  Receive Date: 20220204
  Receipt Date: 20220204
  Transmission Date: 20220423
  Serious: Yes (Hospitalization, Other)
  Sender: FDA-Public Use
  Company Number: CA-ABBVIE-22K-028-4261897-00

PATIENT
  Age: 73 Year
  Sex: Female

DRUGS (1)
  1. HUMIRA [Suspect]
     Active Substance: ADALIMUMAB
     Indication: Rheumatoid arthritis
     Route: 058
     Dates: start: 20121209

REACTIONS (11)
  - Renal failure [Unknown]
  - Dyspnoea [Unknown]
  - Tachycardia [Not Recovered/Not Resolved]
  - Chronic obstructive pulmonary disease [Unknown]
  - Muscle atrophy [Unknown]
  - Arthropathy [Unknown]
  - Clostridium difficile infection [Recovering/Resolving]
  - Rash [Unknown]
  - Peripheral swelling [Unknown]
  - Peripheral swelling [Unknown]
  - Unevaluable event [Recovering/Resolving]

NARRATIVE: CASE EVENT DATE: 20210801
